FAERS Safety Report 10811519 (Version 1)
Quarter: 2015Q1

REPORT INFORMATION
  Report Type: Spontaneous
  Country: US (occurrence: None)
  Receive Date: 20150212
  Receipt Date: 20150212
  Transmission Date: 20150721
  Serious: No
  Sender: FDA-Public Use
  Company Number: None

PATIENT
  Age: 52 Year
  Sex: Female
  Weight: 68.04 kg

DRUGS (2)
  1. VENLAFAXINE HCL [Suspect]
     Active Substance: VENLAFAXINE HYDROCHLORIDE
     Indication: MUSCLE TWITCHING
     Dosage: 150MG (1 PILL) ONCE DAILY TAKEN BY MOUTH
     Route: 048
  2. VENLAFAXINE HCL [Suspect]
     Active Substance: VENLAFAXINE HYDROCHLORIDE
     Indication: ANXIETY
     Dosage: 150MG (1 PILL) ONCE DAILY TAKEN BY MOUTH
     Route: 048

REACTIONS (8)
  - Anxiety [None]
  - Cerebrovascular accident [None]
  - Eye pain [None]
  - Tremor [None]
  - Alopecia [None]
  - Depression [None]
  - Headache [None]
  - Muscle twitching [None]

NARRATIVE: CASE EVENT DATE: 20150206
